FAERS Safety Report 20872514 (Version 1)
Quarter: 2022Q2

REPORT INFORMATION
  Report Type: Spontaneous
  Country: US (occurrence: US)
  Receive Date: 20220525
  Receipt Date: 20220525
  Transmission Date: 20220721
  Serious: No
  Sender: FDA-Public Use
  Company Number: US-PFIZER INC-202200511719

PATIENT
  Age: 70 Year
  Sex: Female
  Weight: 79.819 kg

DRUGS (6)
  1. XELJANZ [Suspect]
     Active Substance: TOFACITINIB CITRATE
     Indication: Psoriatic arthropathy
     Dosage: 5 MG, 2X/DAY
     Dates: start: 20220203
  2. COSENTYX [Concomitant]
     Active Substance: SECUKINUMAB
     Dosage: UNK, (COSENTYX X 1.5 YEARS)
     Dates: end: 202112
  3. ENBREL [Concomitant]
     Active Substance: ETANERCEPT
     Dosage: UNK , (ENBREL X ALMOST 2 YEARS)
  4. HUMIRA [Concomitant]
     Active Substance: ADALIMUMAB
     Dosage: UNK, (HUMIRA X 1 YEAR)
  5. METHOTREXATE [Concomitant]
     Active Substance: METHOTREXATE
     Dosage: UNK, (METHOTREXATE X 5 MONTHS)
  6. REMICADE [Concomitant]
     Active Substance: INFLIXIMAB
     Dosage: UNK, (REMICADE X 3 TREATMENTS)

REACTIONS (9)
  - Arthritis [Unknown]
  - Constipation [Unknown]
  - Feeling abnormal [Unknown]
  - Oral pain [Unknown]
  - Lip pain [Unknown]
  - Glossodynia [Unknown]
  - Paraesthesia oral [Unknown]
  - Therapeutic response unexpected [Recovering/Resolving]
  - Condition aggravated [Unknown]
